FAERS Safety Report 18026761 (Version 1)
Quarter: 2020Q3

REPORT INFORMATION
  Report Type: Spontaneous
  Country: US (occurrence: US)
  Receive Date: 20200715
  Receipt Date: 20200715
  Transmission Date: 20201103
  Serious: No
  Sender: FDA-Public Use
  Company Number: US-BIOMARINAP-US-2020-130865

PATIENT
  Sex: Male
  Weight: 54.42 kg

DRUGS (1)
  1. KUVAN [Suspect]
     Active Substance: SAPROPTERIN DIHYDROCHLORIDE
     Indication: PHENYLKETONURIA
     Dosage: 800 MILLIGRAM, QD
     Route: 065
     Dates: start: 201512

REACTIONS (3)
  - Dehydration [Unknown]
  - Headache [Unknown]
  - Rhinitis [Unknown]
